FAERS Safety Report 13464936 (Version 1)
Quarter: 2017Q2

REPORT INFORMATION
  Report Type: Spontaneous
  Country: DE (occurrence: DE)
  Receive Date: 20170420
  Receipt Date: 20170420
  Transmission Date: 20170830
  Serious: Yes (Death, Life-Threatening, Other)
  Sender: FDA-Public Use
  Company Number: DE-BRISTOL-MYERS SQUIBB COMPANY-BMS-2017-032189

PATIENT
  Age: 49 Year
  Sex: Male
  Weight: 122 kg

DRUGS (1)
  1. OPDIVO [Suspect]
     Active Substance: NIVOLUMAB
     Indication: NON-SMALL CELL LUNG CANCER
     Dosage: 370 MG, UNK
     Route: 065
     Dates: start: 20170327

REACTIONS (6)
  - Haemorrhage [Fatal]
  - Disseminated intravascular coagulation [Fatal]
  - Haemolysis [Unknown]
  - Thrombotic thrombocytopenic purpura [Fatal]
  - Hyperfibrinolysis [Fatal]
  - Plasmapheresis [Unknown]

NARRATIVE: CASE EVENT DATE: 20170409
